FAERS Safety Report 15886206 (Version 1)
Quarter: 2019Q1

REPORT INFORMATION
  Report Type: Spontaneous
  Country: US (occurrence: US)
  Receive Date: 20190129
  Receipt Date: 20190129
  Transmission Date: 20190417
  Serious: Yes (Hospitalization, Other)
  Sender: FDA-Public Use
  Company Number: US-MYLANLABS-2019M1006074

PATIENT
  Age: 62 Year
  Sex: Female

DRUGS (10)
  1. CYTARABINE. [Suspect]
     Active Substance: CYTARABINE
     Indication: ACUTE MYELOID LEUKAEMIA
     Dosage: DAYS 1-7; AS PART OF 7+3 INDUCTION THERAPY
     Route: 042
  2. AZACITIDINE. [Suspect]
     Active Substance: AZACITIDINE
     Indication: ACUTE MYELOID LEUKAEMIA
     Dosage: DAYS 1-7 FOR THREE CYCLES. LATER RECEIVED 13 MORE CYCLES
     Route: 058
  3. VENETOCLAX. [Suspect]
     Active Substance: VENETOCLAX
     Indication: ACUTE MYELOID LEUKAEMIA
     Dosage: DOSE RAMP-UP. RECEIVED FOR 5 DOSES
     Route: 065
  4. LENALIDOMIDE [Suspect]
     Active Substance: LENALIDOMIDE
     Indication: ACUTE MYELOID LEUKAEMIA
     Dosage: HIGH DOSE CONSOLIDATION THERAPY FOLLOWED BY MAINTENANCE THERAPY
     Route: 065
  5. IDARUBICIN [Concomitant]
     Active Substance: IDARUBICIN
     Indication: ACUTE MYELOID LEUKAEMIA
     Dosage: DAYS 1-3
     Route: 042
  6. CYTARABINE. [Suspect]
     Active Substance: CYTARABINE
     Dosage: 2G/M2; DAYS 1-5
     Route: 042
  7. LENALIDOMIDE [Suspect]
     Active Substance: LENALIDOMIDE
     Dosage: MAINTENANCE THERAPY RECEIVED IN TRIAL (NCT01578954). RECEIVED THREE CYCLE OF MAINTENANCE THERAPY
     Route: 065
  8. DASATINIB. [Concomitant]
     Active Substance: DASATINIB
     Indication: ACUTE MYELOID LEUKAEMIA
     Route: 065
  9. CYTARABINE. [Suspect]
     Active Substance: CYTARABINE
     Dosage: TWO CYCLES OF CONSOLIDATION CHEMOTHERAPY
     Route: 042
  10. CLADRIBINE. [Suspect]
     Active Substance: CLADRIBINE
     Indication: ACUTE MYELOID LEUKAEMIA
     Dosage: DAYS 1-5
     Route: 042

REACTIONS (2)
  - Clonal evolution [Unknown]
  - Philadelphia chromosome positive [Unknown]
